FAERS Safety Report 18916223 (Version 2)
Quarter: 2022Q3

REPORT INFORMATION
  Report Type: Spontaneous
  Country: HR (occurrence: HR)
  Receive Date: 20210218
  Receipt Date: 20220719
  Transmission Date: 20221026
  Serious: Yes (Death, Hospitalization, Other)
  Sender: FDA-Public Use
  Company Number: None

PATIENT
  Age: 59 Year
  Sex: Female
  Weight: 80 kg

DRUGS (2)
  1. XARELTO [Suspect]
     Active Substance: RIVAROXABAN
     Indication: Aortic thrombosis
     Dosage: 15 MG, BID
     Route: 048
     Dates: start: 20200811, end: 20201226
  2. XARELTO [Suspect]
     Active Substance: RIVAROXABAN
     Indication: Hypercoagulation
     Route: 048

REACTIONS (3)
  - Acute hepatic failure [Fatal]
  - Drug-induced liver injury [Fatal]
  - Brain oedema [Fatal]

NARRATIVE: CASE EVENT DATE: 20201201
